FAERS Safety Report 5085462-1 (Version None)
Quarter: 2006Q3

REPORT INFORMATION
  Report Type: 
  Country: None (occurrence: None)
  Receive Date: 20060816
  Receipt Date: 20060807
  Transmission Date: 20061208
  Serious: Yes (Hospitalization)
  Sender: FDA-Public Use
  Company Number: FR-2006-022586

PATIENT
  Age: 63 Year
  Sex: Female

DRUGS (7)
  1. SOTALOL HYDROCHLORIDE [Suspect]
     Indication: ARRHYTHMIA
     Dosage: 80 MG, 2X/DAY, ORAL
     Route: 048
  2. LASIX [Suspect]
     Indication: HYPERTENSION
     Dosage: 20 MG, 1X/DAY
  3. ICAZ(ISRADIPINE) [Suspect]
     Indication: ARRHYTHMIA
     Dosage: 1X/DAY
  4. OXAZEPAM [Suspect]
     Indication: DEPRESSION
     Dosage: 50 MG
  5. ACTONEL [Suspect]
     Indication: OSTEOPOROSIS
     Dosage: 35, 1X/WEEK
     Dates: start: 20050203
  6. ZALDIAR(PARACETAMOL, TRAMADOL HYDROCHLORIDE) [Suspect]
     Indication: SPINAL COMPRESSION FRACTURE
     Dosage: 6X/DAY
  7. STILNOX /FRA/ (ZOLPIDEM) [Concomitant]

REACTIONS (2)
  - CONVULSION [None]
  - INAPPROPRIATE ANTIDIURETIC HORMONE SECRETION [None]
